FAERS Safety Report 14459865 (Version 1)
Quarter: 2018Q1

REPORT INFORMATION
  Report Type: Spontaneous
  Country: US (occurrence: US)
  Receive Date: 20180129
  Receipt Date: 20180129
  Transmission Date: 20180509
  Serious: No
  Sender: FDA-Public Use
  Company Number: None

PATIENT
  Sex: Male
  Weight: 74.25 kg

DRUGS (1)
  1. ABSORICA [Suspect]
     Active Substance: ISOTRETINOIN
     Indication: ACNE
     Dosage: ?          QUANTITY:1 CAPSULE(S);?
     Route: 048
     Dates: start: 20170515, end: 20171222

REACTIONS (6)
  - Migraine [None]
  - Headache [None]
  - Quality of life decreased [None]
  - Crying [None]
  - Hypertension [None]
  - Educational problem [None]

NARRATIVE: CASE EVENT DATE: 20171119
